FAERS Safety Report 6437555-1 (Version None)
Quarter: 2009Q4

REPORT INFORMATION
  Report Type: 
  Country: None (occurrence: None)
  Receive Date: 20091109
  Receipt Date: 20091029
  Transmission Date: 20100525
  Serious: Yes (Disabling, Other)
  Sender: FDA-Public Use
  Company Number: 2009SP033230

PATIENT
  Age: 41 Year
  Sex: Female

DRUGS (6)
  1. MIRTAZAPINE [Suspect]
     Indication: DEPRESSION
     Dosage: 30 MG; QD;
     Dates: start: 20070724
  2. PREZISTA [Suspect]
     Indication: HIV INFECTION
     Dosage: 600 MG; BID; PO
     Route: 048
     Dates: start: 20070227, end: 20080219
  3. RITONAVIR [Suspect]
     Indication: HIV INFECTION
     Dosage: 100 MG; BID;
     Dates: start: 20070227
  4. METHADONE HCL [Concomitant]
  5. TMC 125 [Concomitant]
  6. TRUVADA [Concomitant]

REACTIONS (5)
  - DEPRESSION [None]
  - DRUG INTERACTION [None]
  - LIPOHYPERTROPHY [None]
  - WAIST CIRCUMFERENCE INCREASED [None]
  - WEIGHT INCREASED [None]
